FAERS Safety Report 7481192-7 (Version None)
Quarter: 2011Q2

REPORT INFORMATION
  Report Type: 
  Country: None (occurrence: None)
  Receive Date: 20110512
  Receipt Date: 20110512
  Transmission Date: 20111010
  Serious: Yes (Other)
  Sender: FDA-Public Use
  Company Number: None

PATIENT
  Sex: Female
  Weight: 72.5755 kg

DRUGS (1)
  1. RECLAST [Suspect]
     Indication: OSTEOPOROSIS
     Dosage: ONCE/YEAR IV
     Route: 042
     Dates: start: 20110321

REACTIONS (7)
  - PHARYNGEAL OEDEMA [None]
  - LIP SWELLING [None]
  - PRURITUS [None]
  - URTICARIA [None]
  - THROAT IRRITATION [None]
  - ANXIETY [None]
  - EYE SWELLING [None]
